FAERS Safety Report 4998360-6 (Version None)
Quarter: 2006Q2

REPORT INFORMATION
  Report Type: 
  Country: None (occurrence: None)
  Receive Date: 20060508
  Receipt Date: 20060427
  Transmission Date: 20061013
  Serious: Yes (Death)
  Sender: FDA-Public Use
  Company Number: 163-20785-06040375

PATIENT
  Age: 65 Year
  Sex: Male

DRUGS (2)
  1. THALOMID [Suspect]
     Indication: MULTIPLE MYELOMA
     Dosage: 100 MG, ORAL
     Route: 048
     Dates: start: 20060126, end: 20060202
  2. DECADRON SRC [Concomitant]

REACTIONS (5)
  - DIFFICULTY IN WALKING [None]
  - DISEASE PROGRESSION [None]
  - DISORIENTATION [None]
  - DYSARTHRIA [None]
  - HEPATIC CIRRHOSIS [None]
